FAERS Safety Report 6144709-0 (Version None)
Quarter: 2009Q2

REPORT INFORMATION
  Report Type: 
  Country: None (occurrence: None)
  Receive Date: 20090406
  Receipt Date: 20090401
  Transmission Date: 20091009
  Serious: Yes (Other)
  Sender: FDA-Public Use
  Company Number: D0060540A

PATIENT
  Age: 71 Year
  Sex: Male

DRUGS (4)
  1. REQUIP [Suspect]
     Indication: PARKINSONISM
     Route: 048
  2. REQUIP [Suspect]
     Indication: PARKINSONISM
     Dosage: 8MG PER DAY
     Route: 048
  3. NEUPRO [Suspect]
     Dosage: 8MG PER DAY
     Route: 065
  4. CARBIDOPA AND LEVODOPA [Concomitant]
     Dosage: 375MG PER DAY
     Route: 048

REACTIONS (12)
  - BREAST PAIN [None]
  - BREAST SWELLING [None]
  - CONFUSIONAL STATE [None]
  - DYSKINESIA [None]
  - DYSPEPSIA [None]
  - ERECTILE DYSFUNCTION [None]
  - FATIGUE [None]
  - ILL-DEFINED DISORDER [None]
  - NIPPLE DISORDER [None]
  - NIPPLE PAIN [None]
  - SUDDEN ONSET OF SLEEP [None]
  - SWELLING [None]
